FAERS Safety Report 10693644 (Version 3)
Quarter: 2015Q1

REPORT INFORMATION
  Report Type: Spontaneous
  Country: TW (occurrence: TW)
  Receive Date: 20150106
  Receipt Date: 20150114
  Transmission Date: 20150721
  Serious: Yes (Death, Hospitalization, Other)
  Sender: FDA-Public Use
  Company Number: TW-CELGENE-TWN-2014124831

PATIENT
  Age: 78 Year
  Sex: Male

DRUGS (3)
  1. REVLIMID [Suspect]
     Active Substance: LENALIDOMIDE
     Indication: PLASMA CELL MYELOMA
     Dosage: 10 MILLIGRAM
     Route: 048
  2. BACLOFEN. [Suspect]
     Active Substance: BACLOFEN
     Indication: HICCUPS
     Route: 048
  3. DEXAMETHASONE. [Concomitant]
     Active Substance: DEXAMETHASONE
     Indication: PLASMA CELL MYELOMA
     Route: 065

REACTIONS (3)
  - Hiccups [Recovered/Resolved]
  - Respiratory failure [Fatal]
  - Altered state of consciousness [Not Recovered/Not Resolved]

NARRATIVE: CASE EVENT DATE: 20141222
